FAERS Safety Report 5333629-7 (Version None)
Quarter: 2007Q2

REPORT INFORMATION
  Report Type: 
  Country: None (occurrence: None)
  Receive Date: 20070524
  Receipt Date: 20070516
  Transmission Date: 20071010
  Serious: Yes (Death)
  Sender: FDA-Public Use
  Company Number: DE-ABBOTT-07P-062-0367930-00

PATIENT
  Sex: Male
  Weight: 48.6 kg

DRUGS (8)
  1. RITONAVIR SOFT GELATIN CAPSULES [Suspect]
     Indication: HIV INFECTION
     Route: 048
     Dates: start: 20060814, end: 20070428
  2. APTIVUS [Concomitant]
     Indication: HIV INFECTION
     Route: 048
     Dates: start: 20060814, end: 20070428
  3. RITONAVIR [Concomitant]
     Indication: HIV INFECTION
     Route: 048
     Dates: start: 20060814, end: 20070428
  4. VIREAD [Concomitant]
     Indication: HIV INFECTION
     Route: 048
     Dates: start: 20040209, end: 20070428
  5. ABACAVIR SULFATE [Concomitant]
     Indication: HIV INFECTION
     Route: 048
     Dates: start: 20060308, end: 20070428
  6. DIDANOSINE [Concomitant]
     Indication: HIV INFECTION
     Route: 048
     Dates: start: 20060814, end: 20070428
  7. ZOPICLONE [Concomitant]
     Indication: SLEEP DISORDER
     Route: 048
     Dates: start: 20060308, end: 20070428
  8. MORPHINE SULFATE [Concomitant]
     Indication: PAIN
     Route: 047
     Dates: start: 20060131, end: 20070428

REACTIONS (1)
  - DEATH [None]
